FAERS Safety Report 8757597 (Version 7)
Quarter: 2014Q1

REPORT INFORMATION
  Report Type: Report from Study
  Country: US (occurrence: US)
  Receive Date: 20120828
  Receipt Date: 20140129
  Transmission Date: 20141002
  Serious: Yes (Hospitalization, Other)
  Sender: FDA-Public Use
  Company Number: US-PFIZER INC-2012209800

PATIENT
  Age: 69 Year
  Sex: Male
  Weight: 140.59 kg

DRUGS (15)
  1. MS CONTIN [Suspect]
     Indication: BACK PAIN
     Dosage: 30 MG, 3X/DAY
     Route: 048
     Dates: start: 20120808, end: 20120811
  2. OXYCODONE HYDROCHLORIDE [Suspect]
     Indication: BACK PAIN
     Dosage: 40 MG, 2X/DAY
     Route: 048
     Dates: start: 20120802, end: 20120807
  3. COUMADIN [Concomitant]
     Dosage: UNK
  4. POTASSIUM [Concomitant]
     Dosage: UNK
  5. LASIX [Concomitant]
     Dosage: UNK
  6. OMEPRAZOLE [Concomitant]
     Dosage: UNK
  7. METFORMIN [Concomitant]
     Dosage: UNK
  8. FENOFIBRATE [Concomitant]
     Dosage: UNK
  9. LISINOPRIL [Concomitant]
     Dosage: UNK
  10. FISH OIL [Concomitant]
  11. STOOL SOFTENER [Concomitant]
     Dosage: UNK
  12. DULCOLAX [Concomitant]
     Dosage: UNK
  13. NEURONTIN [Concomitant]
     Dosage: UNK
  14. AMITRIPTYLINE [Concomitant]
     Dosage: UNK
  15. SIMVASTATIN [Concomitant]
     Dosage: UNK

REACTIONS (2)
  - Renal failure acute [Recovered/Resolved]
  - Metabolic encephalopathy [Recovered/Resolved]
